FAERS Safety Report 10591640 (Version 2)
Quarter: 2015Q2

REPORT INFORMATION
  Report Type: Report from Study
  Country: BR (occurrence: BR)
  Receive Date: 20141118
  Receipt Date: 20150603
  Transmission Date: 20150821
  Serious: Yes (Hospitalization, Other)
  Sender: FDA-Public Use
  Company Number: BR-GLAXOSMITHKLINE-BR2014GSK017900

PATIENT
  Age: 85 Year
  Sex: Male
  Weight: 69 kg

DRUGS (2)
  1. DUTASTERIDE. [Suspect]
     Active Substance: DUTASTERIDE
     Indication: BENIGN PROSTATIC HYPERPLASIA
     Dosage: 1 DF, QD
     Route: 048
  2. NITRENDIPINO [Concomitant]
     Indication: HYPERTENSION

REACTIONS (9)
  - Prostatomegaly [Recovering/Resolving]
  - Renal disorder [Unknown]
  - Weight decreased [Recovered/Resolved]
  - Dysuria [Unknown]
  - Inguinal hernia [Recovered/Resolved]
  - Renal failure [Unknown]
  - Prostate cancer [Unknown]
  - Prostatic disorder [Unknown]
  - Blood pressure fluctuation [Unknown]

NARRATIVE: CASE EVENT DATE: 20140807
